FAERS Safety Report 7500796-6 (Version None)
Quarter: 2011Q2

REPORT INFORMATION
  Report Type: 
  Country: None (occurrence: None)
  Receive Date: 20110524
  Receipt Date: 20110520
  Transmission Date: 20111010
  Serious: Yes (Death)
  Sender: FDA-Public Use
  Company Number: PHHY2011JP38818

PATIENT
  Age: 79 Year
  Sex: Male

DRUGS (2)
  1. TASIGNA [Suspect]
     Indication: CHRONIC MYELOID LEUKAEMIA
     Dosage: UNK
     Route: 048
     Dates: start: 20100415
  2. LYRICA [Suspect]
     Dosage: UNK
     Route: 048
     Dates: start: 20110316

REACTIONS (2)
  - INTERSTITIAL LUNG DISEASE [None]
  - COMPRESSION FRACTURE [None]
